FAERS Safety Report 15729454 (Version 1)
Quarter: 2018Q4

REPORT INFORMATION
  Report Type: Spontaneous
  Country: US (occurrence: US)
  Receive Date: 20181130
  Receipt Date: 20181130
  Transmission Date: 20190205
  Serious: Yes (Hospitalization, Other)
  Sender: FDA-Public Use
  Company Number: None

PATIENT
  Age: 74 Year
  Sex: Male

DRUGS (1)
  1. SULFAMETHOXAZOLE/TRIMETHOPRIM [Suspect]
     Active Substance: SULFAMETHOXAZOLE\TRIMETHOPRIM
     Route: 048
     Dates: start: 20180908, end: 20180915

REACTIONS (10)
  - Brain natriuretic peptide increased [None]
  - Blood lactic acid increased [None]
  - Blood creatine increased [None]
  - Electrocardiogram PR prolongation [None]
  - Pulse pressure decreased [None]
  - Electrocardiogram QRS complex prolonged [None]
  - Hyperkalaemia [None]
  - Impaired healing [None]
  - Blood urea increased [None]
  - Urinary casts [None]

NARRATIVE: CASE EVENT DATE: 20180915
